FAERS Safety Report 18066965 (Version 1)
Quarter: 2020Q3

REPORT INFORMATION
  Report Type: Report from Study
  Country: KR (occurrence: KR)
  Receive Date: 20200724
  Receipt Date: 20200724
  Transmission Date: 20201103
  Serious: Yes (Death)
  Sender: FDA-Public Use
  Company Number: KR-PFIZER INC-2020280113

PATIENT

DRUGS (4)
  1. ETOPOSIDE. [Suspect]
     Active Substance: ETOPOSIDE
     Indication: NON-HODGKIN^S LYMPHOMA
     Dosage: 200 MG/M2, OVER 1 H TWICE DAILY FROM DAY ?4 TO DAY ?3
     Route: 042
  2. MELPHALAN. [Suspect]
     Active Substance: MELPHALAN
     Indication: NON-HODGKIN^S LYMPHOMA
     Dosage: 140 MG/M2, ONCE ON DAY ?2
     Route: 042
  3. CYTARABINE. [Suspect]
     Active Substance: CYTARABINE
     Indication: NON-HODGKIN^S LYMPHOMA
     Dosage: 1 G/M^2 WAS ADMINISTERED INTRAVENOUSLY ONCE DAILY FROM DAY ?4 TO DAY ?3
     Route: 042
  4. BUSULFAN. [Suspect]
     Active Substance: BUSULFAN
     Indication: NON-HODGKIN^S LYMPHOMA
     Dosage: 3.2 MG/KG, ADMINISTERED OVER 3 H ONCE DAILY FROM DAY ?6 TO DAY ?5
     Route: 042

REACTIONS (2)
  - Septic shock [Fatal]
  - Infection [Fatal]
